FAERS Safety Report 11682727 (Version 4)
Quarter: 2016Q1

REPORT INFORMATION
  Report Type: Report from Study
  Country: FR (occurrence: FR)
  Receive Date: 20151029
  Receipt Date: 20160104
  Transmission Date: 20160525
  Serious: Yes (Death, Other)
  Sender: FDA-Public Use
  Company Number: FR-BRISTOL-MYERS SQUIBB COMPANY-BMS-2015-053473

PATIENT
  Age: 56 Year
  Sex: Female
  Weight: 70 kg

DRUGS (11)
  1. NIVOLUMAB [Suspect]
     Active Substance: NIVOLUMAB
     Dosage: 210 UNK, UNK
     Route: 065
     Dates: start: 20151001
  2. BACTRIM [Concomitant]
     Active Substance: SULFAMETHOXAZOLE\TRIMETHOPRIM
     Indication: PROPHYLAXIS AGAINST HIV INFECTION
     Dosage: 400 MG, QD
     Route: 048
  3. VALIUM [Concomitant]
     Active Substance: DIAZEPAM
     Indication: PRODUCT USED FOR UNKNOWN INDICATION
     Dosage: 5 MG, UNK
     Route: 065
  4. NIVOLUMAB [Suspect]
     Active Substance: NIVOLUMAB
     Indication: NON-SMALL CELL LUNG CANCER
     Dosage: 210 MG, UNK
     Route: 042
     Dates: start: 20150623
  5. THERALENE [Concomitant]
     Active Substance: TRIMEPRAZINE
     Indication: PRODUCT USED FOR UNKNOWN INDICATION
     Route: 065
  6. NIVOLUMAB [Suspect]
     Active Substance: NIVOLUMAB
     Dosage: 210 UNK, UNK
     Route: 065
     Dates: start: 20150916
  7. ZYPREXA [Concomitant]
     Active Substance: OLANZAPINE
     Indication: PRODUCT USED FOR UNKNOWN INDICATION
     Dosage: 1 TAB, BID
     Route: 048
  8. EFFEXOR [Concomitant]
     Active Substance: VENLAFAXINE HYDROCHLORIDE
     Indication: PRODUCT USED FOR UNKNOWN INDICATION
     Dosage: 1 UNK, UNK
     Route: 065
  9. REYATAZ [Concomitant]
     Active Substance: ATAZANAVIR SULFATE
     Indication: PROPHYLAXIS AGAINST HIV INFECTION
     Dosage: 1 TAB, BID
     Route: 048
  10. ISENTRESS [Concomitant]
     Active Substance: RALTEGRAVIR POTASSIUM
     Indication: PROPHYLAXIS AGAINST HIV INFECTION
     Dosage: 1 TAB, BID
     Route: 048
  11. AMIODARONE [Suspect]
     Active Substance: AMIODARONE
     Indication: ATRIAL FIBRILLATION
     Route: 048

REACTIONS (8)
  - Death [Fatal]
  - Blood bilirubin decreased [Unknown]
  - Blood bilirubin increased [Unknown]
  - Aspartate aminotransferase abnormal [Unknown]
  - Platelet count decreased [Unknown]
  - Alanine aminotransferase abnormal [Unknown]
  - Blood thyroid stimulating hormone increased [Recovered/Resolved]
  - Lymphocyte count abnormal [Recovered/Resolved]

NARRATIVE: CASE EVENT DATE: 20150706
